FAERS Safety Report 21823521 (Version 4)
Quarter: 2023Q1

REPORT INFORMATION
  Report Type: Spontaneous
  Country: US (occurrence: US)
  Receive Date: 20230105
  Receipt Date: 20230331
  Transmission Date: 20230417
  Serious: Yes (Other)
  Sender: FDA-Public Use
  Company Number: US-DSJP-DSU-2023-100136

PATIENT
  Sex: Female

DRUGS (1)
  1. ENHERTU [Suspect]
     Active Substance: FAM-TRASTUZUMAB DERUXTECAN-NXKI
     Indication: HER2 negative breast cancer
     Dosage: UNK
     Route: 065

REACTIONS (11)
  - Pulmonary embolism [Unknown]
  - Pleural effusion [Unknown]
  - Thrombosis [Unknown]
  - Lung disorder [Unknown]
  - Fracture [Unknown]
  - Quality of life decreased [Unknown]
  - Anger [Unknown]
  - Fear [Unknown]
  - Adverse drug reaction [Unknown]
  - Nervousness [Unknown]
  - Surgery [Unknown]
